FAERS Safety Report 8220832-1 (Version None)
Quarter: 2012Q1

REPORT INFORMATION
  Report Type: 
  Country: None (occurrence: None)
  Receive Date: 20120320
  Receipt Date: 20120317
  Transmission Date: 20120608
  Serious: Yes (Other)
  Sender: FDA-Public Use
  Company Number: US-PFIZER INC-2012070137

PATIENT
  Sex: Male

DRUGS (3)
  1. ENBREL [Suspect]
     Indication: RHEUMATOID ARTHRITIS
     Dosage: 50 MG, QWK
     Dates: start: 20120130
  2. CELEBREX [Suspect]
     Dosage: UNK
  3. FENTANYL-100 [Suspect]

REACTIONS (8)
  - INCREASED UPPER AIRWAY SECRETION [None]
  - SOMNOLENCE [None]
  - RHEUMATOID ARTHRITIS [None]
  - RASH ERYTHEMATOUS [None]
  - OROPHARYNGEAL PAIN [None]
  - COUGH [None]
  - NASOPHARYNGITIS [None]
  - PRURITUS [None]
